FAERS Safety Report 18867721 (Version 1)
Quarter: 2021Q1

REPORT INFORMATION
  Report Type: Spontaneous
  Country: US (occurrence: US)
  Receive Date: 20210209
  Receipt Date: 20210209
  Transmission Date: 20210420
  Serious: Yes (Hospitalization)
  Sender: FDA-Public Use
  Company Number: US-MYLANLABS-2021M1008052

PATIENT
  Age: 7 Decade
  Sex: Female

DRUGS (5)
  1. CLOFARABINE. [Suspect]
     Active Substance: CLOFARABINE
     Indication: BONE MARROW CONDITIONING REGIMEN
     Dosage: UNK
     Route: 065
  2. AZACITIDINE. [Concomitant]
     Active Substance: AZACITIDINE
     Indication: MYELODYSPLASTIC SYNDROME
     Dosage: UNK
     Route: 065
  3. CYTARABINE. [Concomitant]
     Active Substance: CYTARABINE
     Indication: MYELODYSPLASTIC SYNDROME
     Dosage: UNK
     Route: 065
  4. MELPHALAN. [Suspect]
     Active Substance: MELPHALAN
     Indication: BONE MARROW CONDITIONING REGIMEN
     Dosage: UNK
     Route: 065
  5. FLUDARABINE [Suspect]
     Active Substance: FLUDARABINE PHOSPHATE
     Indication: BONE MARROW CONDITIONING REGIMEN
     Dosage: UNK
     Route: 065

REACTIONS (1)
  - Acute myeloid leukaemia [Recovered/Resolved]
